FAERS Safety Report 6336134-4 (Version None)
Quarter: 2009Q3

REPORT INFORMATION
  Report Type: 
  Country: None (occurrence: None)
  Receive Date: 20090901
  Receipt Date: 20090824
  Transmission Date: 20100115
  Serious: Yes (Other)
  Sender: FDA-Public Use
  Company Number: BE-ASTRAZENECA-2009SE06619

PATIENT
  Sex: Female
  Weight: 56 kg

DRUGS (2)
  1. SEROQUEL [Suspect]
     Route: 048
     Dates: start: 20090701
  2. ZYPREXA [Concomitant]
     Route: 065

REACTIONS (1)
  - FLUID RETENTION [None]
